APPROVED DRUG PRODUCT: LENALIDOMIDE
Active Ingredient: LENALIDOMIDE
Strength: 15MG
Dosage Form/Route: CAPSULE;ORAL
Application: A213912 | Product #003 | TE Code: AB
Applicant: MYLAN PHARMACEUTICALS INC
Approved: Aug 30, 2022 | RLD: No | RS: No | Type: RX